FAERS Safety Report 14342183 (Version 1)
Quarter: 2018Q1

REPORT INFORMATION
  Report Type: Spontaneous
  Country: US (occurrence: US)
  Receive Date: 20180102
  Receipt Date: 20180102
  Transmission Date: 20180509
  Serious: No
  Sender: FDA-Public Use
  Company Number: US-TEVA-806760ACC

PATIENT
  Sex: Female

DRUGS (3)
  1. DULOXETINE. [Suspect]
     Active Substance: DULOXETINE
     Dates: start: 2017
  2. DULOXETINE. [Suspect]
     Active Substance: DULOXETINE
     Indication: ANXIETY
     Dates: start: 201705
  3. DULOXETINE. [Suspect]
     Active Substance: DULOXETINE
     Dates: start: 2017

REACTIONS (7)
  - Musculoskeletal stiffness [Unknown]
  - Hypotension [Unknown]
  - Tremor [Unknown]
  - Drug ineffective [Unknown]
  - Wrong technique in product usage process [Unknown]
  - Constipation [Recovered/Resolved]
  - Headache [Recovered/Resolved]

NARRATIVE: CASE EVENT DATE: 2017
